FAERS Safety Report 10947531 (Version 1)
Quarter: 2015Q1

REPORT INFORMATION
  Report Type: Spontaneous
  Country: US (occurrence: None)
  Receive Date: 20150212
  Receipt Date: 20150212
  Transmission Date: 20150721
  Serious: No
  Sender: FDA-Public Use
  Company Number: TPA2011A07046

PATIENT
  Age: 64 Year
  Sex: Female
  Weight: 140.62 kg

DRUGS (7)
  1. UNSPECIFIED DIURETIC (HYDROCHLOROTHIAZIDE) [Concomitant]
  2. ULORIC [Suspect]
     Active Substance: FEBUXOSTAT
     Indication: GOUT
     Route: 048
     Dates: start: 201010, end: 201011
  3. CETIRIZINE [Concomitant]
     Active Substance: CETIRIZINE HYDROCHLORIDE
  4. COLCRYS [Concomitant]
     Active Substance: COLCHICINE
  5. DICLOFENAC [Concomitant]
     Active Substance: DICLOFENAC
  6. PROTONIX (PANTOPRAZOLE) [Concomitant]
  7. ASMANEX TWISTHALER (MOMETASONE FUROATE) [Concomitant]

REACTIONS (4)
  - Pain in extremity [None]
  - Oedema peripheral [None]
  - Joint swelling [None]
  - Arthralgia [None]

NARRATIVE: CASE EVENT DATE: 2010
